FAERS Safety Report 7765526 (Version 4)
Quarter: 2012Q4

REPORT INFORMATION
  Report Type: 
  Country: FR (occurrence: FR)
  Receive Date: 20110119
  Receipt Date: 20121024
  Transmission Date: 20130627
  Serious: Yes (Other)
  Sender: FDA-Public Use
  Company Number: FR-ASTRAZENECA-2011SE01750

PATIENT
  Sex: Female
  Weight: 95 kg

DRUGS (4)
  1. TENORDATE [Suspect]
     Indication: HYPERTENSION
     Route: 048
     Dates: start: 2007
  2. CRESTOR [Suspect]
     Indication: HYPERCHOLESTEROLAEMIA
     Route: 048
     Dates: start: 2004
  3. MEDIATOR [Suspect]
     Indication: CENTRAL OBESITY
     Route: 048
     Dates: start: 2002, end: 2009
  4. COTRIATEC [Suspect]
     Indication: HYPERTENSION
     Route: 048
     Dates: start: 2007

REACTIONS (5)
  - Aortic valve incompetence [Unknown]
  - Bradycardia [Unknown]
  - Dizziness [Unknown]
  - Malaise [Unknown]
  - Arrhythmia [Unknown]
